FAERS Safety Report 7480556-5 (Version None)
Quarter: 2011Q2

REPORT INFORMATION
  Report Type: 
  Country: None (occurrence: None)
  Receive Date: 20110516
  Receipt Date: 20110506
  Transmission Date: 20111010
  Serious: No
  Sender: FDA-Public Use
  Company Number: US-BIOGENIDEC-2011BI017339

PATIENT
  Age: 82 Year
  Sex: Female

DRUGS (3)
  1. AVONEX [Suspect]
     Indication: MULTIPLE SCLEROSIS
     Route: 030
     Dates: start: 20090612
  2. AVONEX [Suspect]
     Route: 030
     Dates: start: 19990624, end: 20060215
  3. AVONEX [Suspect]
     Route: 030
     Dates: start: 20061201, end: 20090305

REACTIONS (1)
  - SPINAL FRACTURE [None]
